FAERS Safety Report 13758713 (Version 1)
Quarter: 2017Q3

REPORT INFORMATION
  Report Type: Spontaneous
  Country: US (occurrence: US)
  Receive Date: 20170717
  Receipt Date: 20170717
  Transmission Date: 20171127
  Serious: No
  Sender: FDA-Public Use
  Company Number: US-ELI_LILLY_AND_COMPANY-US201707005734

PATIENT
  Age: 75 Year
  Sex: Female

DRUGS (1)
  1. PROZAC [Suspect]
     Active Substance: FLUOXETINE HYDROCHLORIDE
     Indication: BIPOLAR DISORDER
     Dosage: 40 MG, DAILY
     Route: 048

REACTIONS (3)
  - Depression [Recovered/Resolved]
  - Mania [Recovered/Resolved]
  - Fibromyalgia [Not Recovered/Not Resolved]
